FAERS Safety Report 16313638 (Version 2)
Quarter: 2019Q3

REPORT INFORMATION
  Report Type: Spontaneous
  Country: US (occurrence: US)
  Receive Date: 20190515
  Receipt Date: 20190715
  Transmission Date: 20191004
  Serious: Yes (Other)
  Sender: FDA-Public Use
  Company Number: US-PFIZER INC-2019204565

PATIENT
  Age: 65 Year
  Sex: Female

DRUGS (1)
  1. XELJANZ XR [Suspect]
     Active Substance: TOFACITINIB CITRATE
     Indication: ALOPECIA
     Dosage: 11 MG, UNK

REACTIONS (6)
  - Cataract [Unknown]
  - Product use in unapproved indication [Unknown]
  - Off label use [Unknown]
  - Hair growth abnormal [Unknown]
  - Hip fracture [Unknown]
  - Hand deformity [Unknown]
